FAERS Safety Report 23542631 (Version 1)
Quarter: 2024Q1

REPORT INFORMATION
  Report Type: Spontaneous
  Country: TT (occurrence: TT)
  Receive Date: 20240220
  Receipt Date: 20240220
  Transmission Date: 20240410
  Serious: Yes (Other)
  Sender: FDA-Public Use
  Company Number: TT-ALKEM LABORATORIES LIMITED-TT-ALKEM-2023-00190

PATIENT
  Age: 9 Year
  Sex: Female

DRUGS (1)
  1. TRIAMCINOLONE ACETONIDE [Suspect]
     Active Substance: TRIAMCINOLONE ACETONIDE
     Indication: Keloid scar
     Dosage: 40 MILLIGRAM (1 ML OF 40 MG/ML)
     Route: 026

REACTIONS (1)
  - Cushing^s syndrome [Recovered/Resolved]
